FAERS Safety Report 18314776 (Version 1)
Quarter: 2020Q3

REPORT INFORMATION
  Report Type: Spontaneous
  Country: CN (occurrence: CN)
  Receive Date: 20200925
  Receipt Date: 20200925
  Transmission Date: 20201103
  Serious: Yes (Other)
  Sender: FDA-Public Use
  Company Number: CN-009507513-2009CHN007538

PATIENT
  Age: 49 Year
  Sex: Female
  Weight: 104 kg

DRUGS (5)
  1. LIDOCAINE. [Concomitant]
     Active Substance: LIDOCAINE
     Indication: INFILTRATION ANAESTHESIA
     Dosage: 2 MILLILITER
     Dates: start: 20200914
  2. MECOBALAMIN [Suspect]
     Active Substance: METHYLCOBALAMIN
     Dosage: 1 MILLIGRAM, QD, SACRAL CANAL INJECTION
     Dates: start: 20200914, end: 20200914
  3. ROPIVACAINE HYDROCHLORIDE. [Suspect]
     Active Substance: ROPIVACAINE HYDROCHLORIDE
     Dosage: 2 MILLILITER, QD, SACRAL CANAL INJECTION
     Dates: start: 20200914, end: 20200914
  4. SODIUM CHLORIDE. [Concomitant]
     Active Substance: SODIUM CHLORIDE
     Dosage: 20 MILLILITER
     Dates: start: 20200914
  5. DIPROSPAN [Suspect]
     Active Substance: BETAMETHASONE DIPROPIONATE\BETAMETHASONE SODIUM PHOSPHATE
     Indication: NERVE BLOCK
     Dosage: 1 MILLILITER, QD, SACRAL CANAL INJECTION
     Dates: start: 20200914, end: 20200914

REACTIONS (9)
  - Chest discomfort [Recovering/Resolving]
  - Hypoaesthesia [Recovering/Resolving]
  - Dyspnoea [Recovering/Resolving]
  - Palpitations [Recovering/Resolving]
  - Blood pressure increased [Recovering/Resolving]
  - Product use in unapproved indication [Unknown]
  - Tachypnoea [Recovering/Resolving]
  - Hyperhidrosis [Recovered/Resolved]
  - Nausea [Recovering/Resolving]

NARRATIVE: CASE EVENT DATE: 20200914
